FAERS Safety Report 12651782 (Version 1)
Quarter: 2016Q3

REPORT INFORMATION
  Report Type: Spontaneous
  Country: FR (occurrence: FR)
  Receive Date: 20160815
  Receipt Date: 20160815
  Transmission Date: 20161109
  Serious: Yes (Hospitalization)
  Sender: FDA-Public Use
  Company Number: FR-PFIZER INC-FR-WYE-G04438009

PATIENT
  Age: 40 Year
  Sex: Female

DRUGS (8)
  1. ADVIL [Suspect]
     Active Substance: IBUPROFEN
     Indication: HEADACHE
     Dosage: UNKNOWN
     Route: 048
     Dates: start: 20090803, end: 20090807
  2. XANAX [Suspect]
     Active Substance: ALPRAZOLAM
     Dosage: UNKNOWN
     Route: 048
     Dates: start: 200803, end: 20090730
  3. SERESTA [Suspect]
     Active Substance: OXAZEPAM
     Indication: DEPRESSION
     Dosage: UNKNOWN
     Route: 048
     Dates: start: 20090730, end: 20090821
  4. DOLIPRANE [Concomitant]
     Active Substance: ACETAMINOPHEN
     Dosage: UNK
     Route: 048
     Dates: start: 20090807
  5. ADVIL [Suspect]
     Active Substance: IBUPROFEN
     Indication: ODYNOPHAGIA
  6. TEGRETOL [Suspect]
     Active Substance: CARBAMAZEPINE
     Indication: DEPRESSION
     Dosage: UNKNOWN
     Route: 048
     Dates: start: 20090730, end: 20090821
  7. ZYPREXA [Suspect]
     Active Substance: OLANZAPINE
     Indication: DEPRESSION
     Dosage: UNKNOWN
     Route: 048
     Dates: start: 200803, end: 20090730
  8. AUGMENTIN [Suspect]
     Active Substance: AMOXICILLIN\CLAVULANATE POTASSIUM
     Indication: TONSILLITIS
     Dosage: UNKNOWN
     Route: 048
     Dates: start: 20090807, end: 20090810

REACTIONS (13)
  - Hypotension [Recovering/Resolving]
  - Rales [Recovering/Resolving]
  - Myalgia [Recovering/Resolving]
  - Alanine aminotransferase increased [Recovering/Resolving]
  - Drug reaction with eosinophilia and systemic symptoms [Recovering/Resolving]
  - Skin exfoliation [Recovering/Resolving]
  - Leukocytosis [Recovering/Resolving]
  - Eczema [Recovering/Resolving]
  - Blood lactate dehydrogenase increased [Recovering/Resolving]
  - Blood creatine phosphokinase increased [Recovering/Resolving]
  - Rash vesicular [Recovering/Resolving]
  - Eosinophilia [Recovering/Resolving]
  - Generalised erythema [Recovering/Resolving]

NARRATIVE: CASE EVENT DATE: 200908
